FAERS Safety Report 5039412-4 (Version None)
Quarter: 2006Q2

REPORT INFORMATION
  Report Type: 
  Country: None (occurrence: None)
  Receive Date: 20060623
  Receipt Date: 20060614
  Transmission Date: 20061013
  Serious: Yes (Other)
  Sender: FDA-Public Use
  Company Number: 2006076885

PATIENT
  Age: 43 Year
  Sex: Male

DRUGS (4)
  1. LYRICA [Suspect]
     Indication: NEURALGIA
     Dates: start: 20050801
  2. OXYCODONE (OXYCODONE) [Concomitant]
  3. LIDODERM [Concomitant]
  4. KAPANOL(MORPHINE SULFATE) [Concomitant]

REACTIONS (5)
  - DYSPHAGIA [None]
  - EYE DISCHARGE [None]
  - OEDEMA PERIPHERAL [None]
  - PURULENCE [None]
  - SWELLING FACE [None]
